FAERS Safety Report 16999360 (Version 3)
Quarter: 2021Q2

REPORT INFORMATION
  Report Type: Spontaneous
  Country: US (occurrence: US)
  Receive Date: 20191105
  Receipt Date: 20210521
  Transmission Date: 20210716
  Serious: No
  Sender: FDA-Public Use
  Company Number: US-RADIUS HEALTH INC.-2019US003710

PATIENT
  Age: 87 Year
  Sex: Female

DRUGS (2)
  1. TYMLOS [Suspect]
     Active Substance: ABALOPARATIDE
     Indication: OSTEOPOROSIS POSTMENOPAUSAL
     Dosage: 80 MCG QD
     Route: 058
     Dates: start: 20191007, end: 20191111
  2. TYMLOS [Suspect]
     Active Substance: ABALOPARATIDE
     Dosage: 80 MCG, QOD
     Route: 058

REACTIONS (9)
  - Tremor [Recovered/Resolved]
  - Feeling hot [Recovered/Resolved]
  - Dizziness [Unknown]
  - Hypotension [Recovering/Resolving]
  - Orthostatic hypotension [Unknown]
  - Cold sweat [Recovered/Resolved]
  - Nausea [Unknown]
  - Inappropriate schedule of product administration [Unknown]
  - Feeling cold [Unknown]

NARRATIVE: CASE EVENT DATE: 20191007
